FAERS Safety Report 8382570-4 (Version None)
Quarter: 2012Q2

REPORT INFORMATION
  Report Type: 
  Country: None (occurrence: None)
  Receive Date: 20120522
  Receipt Date: 20110421
  Transmission Date: 20120825
  Serious: Yes (Life-Threatening, Hospitalization)
  Sender: FDA-Public Use
  Company Number: 2011-02028

PATIENT
  Age: 66 Year
  Sex: Male

DRUGS (12)
  1. RABEPRAZOLE SODIUM [Concomitant]
  2. UFT [Concomitant]
  3. PITAVASTATIN CALCIUM [Concomitant]
  4. TICOPIDINE HYDROCHLORIDE [Concomitant]
  5. METFFORMIN HYDROCHLORIDE [Concomitant]
  6. IMMUCYST [Suspect]
     Indication: BLADDER CANCER
     Dosage: 75.0 MG I.VES., BLADDER
     Dates: start: 20110120, end: 20110224
  7. DOXAZOSIN MESILATE [Concomitant]
  8. CANDESARTAN CILEXETIL [Concomitant]
  9. ETIZOLAM [Concomitant]
  10. SILODOSIN [Concomitant]
  11. ASPIRIN [Concomitant]
  12. AMLODIPINE BESYLATE [Concomitant]

REACTIONS (2)
  - HYPERGLYCAEMIC HYPEROSMOLAR NONKETOTIC SYNDROME [None]
  - GAMMA-GLUTAMYLTRANSFERASE INCREASED [None]
